FAERS Safety Report 9360504 (Version 1)
Quarter: 2013Q2

REPORT INFORMATION
  Report Type: Spontaneous
  Country: JP (occurrence: JP)
  Receive Date: 20130621
  Receipt Date: 20130621
  Transmission Date: 20140414
  Serious: Yes (Hospitalization)
  Sender: FDA-Public Use
  Company Number: JP-GENZYME-THYM-1003866

PATIENT
  Age: 56 Year
  Sex: Female

DRUGS (2)
  1. THYMOGLOBULINE [Suspect]
     Indication: PRODUCT USED FOR UNKNOWN INDICATION
     Dosage: UNK
     Route: 065
  2. CYCLOSPORIN [Concomitant]
     Indication: PRODUCT USED FOR UNKNOWN INDICATION
     Dosage: UNK
     Route: 065

REACTIONS (2)
  - Histiocytosis haematophagic [Not Recovered/Not Resolved]
  - Post transplant lymphoproliferative disorder [Not Recovered/Not Resolved]
